FAERS Safety Report 5567436-7 (Version None)
Quarter: 2007Q4

REPORT INFORMATION
  Report Type: 
  Country: None (occurrence: None)
  Receive Date: 20071214
  Receipt Date: 20071203
  Transmission Date: 20080405
  Serious: Yes (Hospitalization)
  Sender: FDA-Public Use
  Company Number: 2007336470

PATIENT
  Age: 48 Year
  Sex: Male

DRUGS (3)
  1. MINOXIDIL [Suspect]
     Dosage: TOPICAL
     Route: 061
  2. MINOXIDIL [Suspect]
     Dosage: TOPICAL
     Route: 061
  3. BIOTIN [Concomitant]

REACTIONS (12)
  - ABDOMINAL PAIN UPPER [None]
  - ALOPECIA [None]
  - CENTRAL NERVOUS SYSTEM NEOPLASM [None]
  - ELECTROENCEPHALOGRAM ABNORMAL [None]
  - GLIOSIS [None]
  - MALAISE [None]
  - NERVOUS SYSTEM DISORDER [None]
  - PETIT MAL EPILEPSY [None]
  - PRURITUS [None]
  - PYRAMIDAL TRACT SYNDROME [None]
  - SURGERY [None]
  - UNEVALUABLE EVENT [None]
